FAERS Safety Report 8169488-7 (Version None)
Quarter: 2012Q1

REPORT INFORMATION
  Report Type: 
  Country: None (occurrence: None)
  Receive Date: 20120228
  Receipt Date: 20120216
  Transmission Date: 20120608
  Serious: Yes (Life-Threatening)
  Sender: FDA-Public Use
  Company Number: PL-JNJFOC-20120210167

PATIENT
  Age: 17 Year
  Sex: Male
  Weight: 34.9 kg

DRUGS (10)
  1. ECOMER [Concomitant]
     Route: 048
  2. ZINCAS FORTE [Concomitant]
     Route: 048
  3. KIDABION [Concomitant]
     Route: 048
  4. ACID FOLIC [Concomitant]
     Route: 065
  5. REMICADE [Suspect]
     Route: 042
     Dates: start: 20120202, end: 20120202
  6. HEMOFER [Concomitant]
     Route: 048
  7. REMICADE [Suspect]
     Indication: CROHN'S DISEASE
     Route: 042
  8. ASAMAX [Concomitant]
     Route: 065
  9. REMICADE [Suspect]
     Route: 042
     Dates: start: 20110221
  10. AZATIOPRINA [Concomitant]
     Route: 065

REACTIONS (6)
  - HYPOTENSION [None]
  - EYELID DISORDER [None]
  - DYSPNOEA [None]
  - INFUSION RELATED REACTION [None]
  - AGITATION [None]
  - EYELID OEDEMA [None]
